FAERS Safety Report 4613344-5 (Version None)
Quarter: 2005Q1

REPORT INFORMATION
  Report Type: 
  Country: None (occurrence: None)
  Receive Date: 20050316
  Receipt Date: 20050303
  Transmission Date: 20050727
  Serious: Yes (Death, Hospitalization)
  Sender: FDA-Public Use
  Company Number: 2005040692

PATIENT
  Age: 85 Year
  Sex: Male

DRUGS (3)
  1. BEXTRA [Suspect]
     Indication: BACK PAIN
     Dosage: 40 MG (40 MG, 1 IN 1 D), ORAL
     Route: 048
     Dates: start: 20050223, end: 20050223
  2. NIFEDIPINE [Concomitant]
  3. FINASTERIDE [Concomitant]

REACTIONS (2)
  - AORTIC ANEURYSM [None]
  - BACK PAIN [None]
